FAERS Safety Report 4359548-0 (Version None)
Quarter: 2004Q2

REPORT INFORMATION
  Report Type: 
  Country: None (occurrence: None)
  Receive Date: 20040512
  Receipt Date: 20040423
  Transmission Date: 20050107
  Serious: Yes (Hospitalization)
  Sender: FDA-Public Use
  Company Number: FR_040403997

PATIENT
  Age: 21 Year
  Sex: Male

DRUGS (5)
  1. ZYPREXA [Suspect]
     Indication: ABNORMAL BEHAVIOUR
     Dosage: 30 MG/1 DAY
     Dates: start: 20031231
  2. ZYPREXA [Suspect]
     Indication: DELIRIUM
     Dosage: 30 MG/1 DAY
     Dates: start: 20031231
  3. LITHIUM CARBONATE [Concomitant]
  4. CHLORPROMAZINE [Concomitant]
  5. CLONAZEPAM [Concomitant]

REACTIONS (2)
  - EOSINOPHIL COUNT INCREASED [None]
  - HEPATOCELLULAR DAMAGE [None]
